FAERS Safety Report 8430353-9 (Version None)
Quarter: 2012Q2

REPORT INFORMATION
  Report Type: 
  Country: None (occurrence: None)
  Receive Date: 20120612
  Receipt Date: 20120608
  Transmission Date: 20120825
  Serious: Yes (Death)
  Sender: FDA-Public Use
  Company Number: JP-BAYER-2012-048241

PATIENT
  Age: 85 Year
  Sex: Male
  Weight: 45 kg

DRUGS (2)
  1. NEXAVAR [Suspect]
     Indication: HEPATIC NEOPLASM MALIGNANT
     Dosage: 400 MG, BID
     Route: 048
     Dates: start: 20120404, end: 20120423
  2. LOSARTAN POTASSIUM [Concomitant]
     Dosage: UNK
     Route: 048

REACTIONS (4)
  - DECREASED APPETITE [None]
  - ACUTE MYOCARDIAL INFARCTION [None]
  - PLATELET COUNT DECREASED [None]
  - AMYLASE INCREASED [None]
